FAERS Safety Report 4353916-9 (Version None)
Quarter: 2004Q2

REPORT INFORMATION
  Report Type: 
  Country: None (occurrence: None)
  Receive Date: 20040503
  Receipt Date: 20040422
  Transmission Date: 20050107
  Serious: Yes (Life-Threatening)
  Sender: FDA-Public Use
  Company Number: 04H-153-0258566-00

PATIENT
  Age: 4 Year
  Sex: Male

DRUGS (1)
  1. LIDOCAINE HCL 2% + EPI. 1:100,000 INJECTION, USP, M-D VIAL (LIDOCAINE [Suspect]
     Indication: ANAESTHESIA
     Dosage: 0.5 MG, ONCE , INJECTION

REACTIONS (9)
  - ANAPHYLACTIC REACTION [None]
  - BRADYCARDIA [None]
  - COMA [None]
  - CYANOSIS [None]
  - DECEREBRATION [None]
  - DYSPNOEA [None]
  - LEUKOCYTOSIS [None]
  - LUNG INFILTRATION [None]
  - RESPIRATORY ARREST [None]
